FAERS Safety Report 11998601 (Version 1)
Quarter: 2016Q1

REPORT INFORMATION
  Report Type: Spontaneous
  Country: US (occurrence: None)
  Receive Date: 20160203
  Receipt Date: 20160203
  Transmission Date: 20160526
  Serious: Yes (Life-Threatening, Hospitalization)
  Sender: FDA-Public Use
  Company Number: None

PATIENT
  Age: 69 Year
  Sex: Female
  Weight: 63.5 kg

DRUGS (8)
  1. CITALOPRAM [Concomitant]
     Active Substance: CITALOPRAM HYDROBROMIDE
  2. VITAMIN D [Concomitant]
     Active Substance: CHOLECALCIFEROL
  3. TUMERIC [Concomitant]
     Active Substance: TURMERIC
  4. FLONASE [Concomitant]
     Active Substance: FLUTICASONE PROPIONATE
  5. CIPROFLOXACIN. [Suspect]
     Active Substance: CIPROFLOXACIN
     Indication: DIVERTICULITIS
     Dosage: 500 MG 1 TABLET TWICE DAILY MOUTH + IV
     Route: 048
     Dates: start: 20151221, end: 20151225
  6. ESTRACE [Concomitant]
     Active Substance: ESTRADIOL
  7. POTASSIUM [Concomitant]
     Active Substance: POTASSIUM
  8. MULTIVITAMIN [Concomitant]
     Active Substance: VITAMINS

REACTIONS (8)
  - Nausea [None]
  - Pain [None]
  - Abdominal lymphadenopathy [None]
  - Ocular hyperaemia [None]
  - Rash [None]
  - Burning sensation [None]
  - Diarrhoea haemorrhagic [None]
  - Somatic symptom disorder [None]

NARRATIVE: CASE EVENT DATE: 20151222
